FAERS Safety Report 5409824-5 (Version None)
Quarter: 2007Q3

REPORT INFORMATION
  Report Type: 
  Country: None (occurrence: None)
  Receive Date: 20070807
  Receipt Date: 20070726
  Transmission Date: 20080115
  Serious: Yes (Death, Hospitalization)
  Sender: FDA-Public Use
  Company Number: 2007US001726

PATIENT
  Age: 48 Year
  Sex: Male
  Weight: 101.6 kg

DRUGS (2)
  1. PROGRAF [Suspect]
     Indication: KIDNEY TRANSPLANT REJECTION
     Dates: start: 20050729
  2. CELLCEPT [Concomitant]

REACTIONS (14)
  - CARDIOMEGALY [None]
  - COAGULOPATHY [None]
  - COLITIS [None]
  - ENCEPHALOPATHY [None]
  - HEPATIC NECROSIS [None]
  - HYPERKALAEMIA [None]
  - HYPOTENSION [None]
  - LACUNAR INFARCTION [None]
  - LEUKOENCEPHALOPATHY [None]
  - LOBAR PNEUMONIA [None]
  - PNEUMONIA ASPIRATION [None]
  - PULMONARY CONGESTION [None]
  - RHABDOMYOLYSIS [None]
  - SPLENOMEGALY [None]
